FAERS Safety Report 14507548 (Version 5)
Quarter: 2018Q2

REPORT INFORMATION
  Report Type: Report from Study
  Country: KR (occurrence: KR)
  Receive Date: 20180208
  Receipt Date: 20180406
  Transmission Date: 20180711
  Serious: Yes (Hospitalization, Other)
  Sender: FDA-Public Use
  Company Number: KR-B.I. PHARMACEUTICALS,INC./RIDGEFIELD-2018-BI-006351

PATIENT
  Age: 58 Year
  Sex: Female
  Weight: 61.4 kg

DRUGS (10)
  1. GILOTRIF [Suspect]
     Active Substance: AFATINIB
     Indication: NON-SMALL CELL LUNG CANCER
     Route: 048
     Dates: start: 20170220, end: 20170403
  2. GILOTRIF [Suspect]
     Active Substance: AFATINIB
     Route: 048
     Dates: start: 20171115, end: 20171127
  3. GILOTRIF [Suspect]
     Active Substance: AFATINIB
     Route: 048
     Dates: start: 20170428, end: 20171031
  4. KEPPRA [Concomitant]
     Active Substance: LEVETIRACETAM
     Indication: HEADACHE
     Route: 065
     Dates: start: 20171031, end: 20171206
  5. KEPPRA [Concomitant]
     Active Substance: LEVETIRACETAM
     Indication: BRAIN NEOPLASM
     Route: 065
     Dates: start: 20170208, end: 20170517
  6. GILOTRIF [Suspect]
     Active Substance: AFATINIB
     Route: 048
     Dates: start: 20170411, end: 20170418
  7. ULTRACET [Concomitant]
     Active Substance: ACETAMINOPHEN\TRAMADOL HYDROCHLORIDE
     Indication: PAIN
     Route: 065
     Dates: start: 20170202, end: 20170202
  8. LEXAPRO [Concomitant]
     Active Substance: ESCITALOPRAM OXALATE
     Indication: DEPRESSION
     Route: 065
     Dates: start: 20170131
  9. GLIATILIN [Concomitant]
     Active Substance: CHOLINE ALFOSCERATE
     Indication: DEPRESSION
     Route: 065
     Dates: start: 20170204, end: 20171206
  10. ULTRACET [Concomitant]
     Active Substance: ACETAMINOPHEN\TRAMADOL HYDROCHLORIDE
     Route: 065
     Dates: start: 20171109, end: 20171206

REACTIONS (2)
  - Seborrhoeic dermatitis [Recovered/Resolved]
  - Malignant neoplasm progression [Not Recovered/Not Resolved]

NARRATIVE: CASE EVENT DATE: 20171028
